FAERS Safety Report 15692995 (Version 2)
Quarter: 2018Q4

REPORT INFORMATION
  Report Type: Report from Study
  Country: US (occurrence: US)
  Receive Date: 20181206
  Receipt Date: 20181221
  Transmission Date: 20190205
  Serious: Yes (Other)
  Sender: FDA-Public Use
  Company Number: US-TEVA-2018-US-983314

PATIENT
  Age: 51 Year
  Sex: Male

DRUGS (10)
  1. DEXTROMETHORPHAN/QUINIDINE [Suspect]
     Active Substance: DEXTROMETHORPHAN HYDROBROMIDE\QUINIDINE SULFATE
     Indication: FRONTOTEMPORAL DEMENTIA
     Dosage: DEXTROMETHORPHAN 20MG AND QUINIDINE 10MG DAILY
  2. BUPROPION. [Suspect]
     Active Substance: BUPROPION
     Indication: FRONTOTEMPORAL DEMENTIA
     Route: 065
  3. OLANZAPINE. [Suspect]
     Active Substance: OLANZAPINE
     Indication: FRONTOTEMPORAL DEMENTIA
     Dosage: 20 MILLIGRAM DAILY; ONCE AT NIGHT
     Route: 065
  4. LITHIUM. [Suspect]
     Active Substance: LITHIUM
     Indication: FRONTOTEMPORAL DEMENTIA
     Route: 065
  5. ARIPIPRAZOLE. [Suspect]
     Active Substance: ARIPIPRAZOLE
     Indication: FRONTOTEMPORAL DEMENTIA
     Route: 065
  6. DEXTROMETHORPHAN/QUINIDINE [Suspect]
     Active Substance: DEXTROMETHORPHAN HYDROBROMIDE\QUINIDINE SULFATE
     Dosage: DEXTROMETHORPHAN 20MG AND QUINIDINE 10MG TWICE DAILY
  7. TRAZODONE [Suspect]
     Active Substance: TRAZODONE HYDROCHLORIDE
     Indication: FRONTOTEMPORAL DEMENTIA
     Dosage: 200 MILLIGRAM DAILY; ONCE AT NIGHT
     Route: 065
  8. QUETIAPINE. [Suspect]
     Active Substance: QUETIAPINE
     Indication: FRONTOTEMPORAL DEMENTIA
     Route: 065
  9. CITALOPRAM [Suspect]
     Active Substance: CITALOPRAM HYDROBROMIDE
     Indication: FRONTOTEMPORAL DEMENTIA
     Route: 065
  10. ESCITALOPRAM [Suspect]
     Active Substance: ESCITALOPRAM OXALATE
     Indication: FRONTOTEMPORAL DEMENTIA
     Dosage: 20 MILLIGRAM DAILY; ONCE IN THE MORNING
     Route: 065

REACTIONS (3)
  - Aggression [Not Recovered/Not Resolved]
  - Drug ineffective [Unknown]
  - Extrapyramidal disorder [Not Recovered/Not Resolved]
